FAERS Safety Report 14483516 (Version 5)
Quarter: 2019Q2

REPORT INFORMATION
  Report Type: Report from Study
  Country: None (occurrence: CA)
  Receive Date: 20180204
  Receipt Date: 20190417
  Transmission Date: 20190711
  Serious: Yes (Other)
  Sender: FDA-Public Use
  Company Number: CA-ABBVIE-18K-028-2241375-00

PATIENT
  Age: 6 Year
  Sex: Female

DRUGS (3)
  1. HUMIRA [Suspect]
     Active Substance: ADALIMUMAB
     Indication: RASMUSSEN ENCEPHALITIS
     Route: 058
     Dates: start: 20180108
  2. HUMIRA [Suspect]
     Active Substance: ADALIMUMAB
     Indication: RASMUSSEN ENCEPHALITIS
     Route: 058
  3. HUMIRA [Suspect]
     Active Substance: ADALIMUMAB
     Route: 058

REACTIONS (6)
  - Injection site pain [Not Recovered/Not Resolved]
  - Epilepsy [Recovering/Resolving]
  - Epilepsy [Recovered/Resolved]
  - Generalised tonic-clonic seizure [Recovered/Resolved]
  - Off label use [Unknown]
  - Petit mal epilepsy [Unknown]

NARRATIVE: CASE EVENT DATE: 2018
